FAERS Safety Report 8017080-7 (Version None)
Quarter: 2012Q1

REPORT INFORMATION
  Report Type: 
  Country: None (occurrence: None)
  Receive Date: 20120102
  Receipt Date: 20111229
  Transmission Date: 20120608
  Serious: Yes (Death, Other)
  Sender: FDA-Public Use
  Company Number: PHEH2010US03504

PATIENT
  Sex: Female

DRUGS (28)
  1. WARFARIN SODIUM [Concomitant]
  2. VICODIN [Concomitant]
  3. OMEPRAZOLE [Concomitant]
  4. ACETAMINOPHEN [Concomitant]
  5. PSYLLIUM [Concomitant]
     Dosage: 1 DF, BID
  6. AMOXICILLIN [Concomitant]
  7. LOVENOX [Concomitant]
  8. PAXIL [Concomitant]
  9. PERIDEX [Concomitant]
  10. CELEXA [Concomitant]
     Dosage: 10 MG, QHS
     Route: 048
  11. ESTRADIOL [Concomitant]
  12. FEMARA [Concomitant]
  13. METOCLOPRAMIDE [Concomitant]
  14. HERCEPTIN [Concomitant]
  15. TAMOXIFEN CITRATE [Concomitant]
  16. CLINDAMYCIN [Concomitant]
     Dosage: 300 MG, TID
     Route: 048
  17. FLAGYL [Concomitant]
     Dosage: 500 MG, TID
  18. ZOMETA [Suspect]
     Indication: BREAST CANCER METASTATIC
     Dates: start: 20070101
  19. COUMADIN [Concomitant]
  20. DOCUSATE [Concomitant]
     Dosage: 200 MG, BID
  21. DIPHENHYDRAMINE HCL [Concomitant]
  22. NALOXONE [Concomitant]
  23. SENOKOT [Concomitant]
  24. LETROZOLE [Concomitant]
  25. PEN-VEE K [Concomitant]
     Dosage: 500 MG, QID
  26. DROPERIDOL [Concomitant]
  27. PROMETHAZINE [Concomitant]
  28. CEFAZOLIN [Concomitant]

REACTIONS (39)
  - DEATH [None]
  - DEFORMITY [None]
  - MUSCLE SPASMS [None]
  - ABSCESS [None]
  - ARTHRITIS [None]
  - METASTASES TO BONE [None]
  - HAEMOPTYSIS [None]
  - NASAL CONGESTION [None]
  - OSTEOSCLEROSIS [None]
  - OSTEOMYELITIS [None]
  - PNEUMONIA [None]
  - METASTASES TO LIVER [None]
  - IMPETIGO [None]
  - INJURY [None]
  - DEPRESSION [None]
  - THYROID DISORDER [None]
  - ANXIETY [None]
  - FACIAL PAIN [None]
  - PARAESTHESIA ORAL [None]
  - PRIMARY SEQUESTRUM [None]
  - BACTERIAL DISEASE CARRIER [None]
  - JAW FRACTURE [None]
  - OPEN WOUND [None]
  - METASTASES TO PLEURA [None]
  - OSTEONECROSIS OF JAW [None]
  - PAIN [None]
  - EXPOSED BONE IN JAW [None]
  - PATHOLOGICAL FRACTURE [None]
  - METASTASES TO SPLEEN [None]
  - TOOTH LOSS [None]
  - RIB FRACTURE [None]
  - CHEST PAIN [None]
  - EMOTIONAL DISTRESS [None]
  - SWELLING FACE [None]
  - PAIN IN JAW [None]
  - DYSPNOEA EXERTIONAL [None]
  - ERYTHEMA [None]
  - HYPERLIPIDAEMIA [None]
  - FACIAL NERVE DISORDER [None]
